FAERS Safety Report 5094646-8 (Version None)
Quarter: 2006Q3

REPORT INFORMATION
  Report Type: 
  Country: None (occurrence: None)
  Receive Date: 20060830
  Receipt Date: 20060814
  Transmission Date: 20061208
  Serious: Yes (Hospitalization, Other)
  Sender: FDA-Public Use
  Company Number: US200607001652

PATIENT
  Age: 72 Year
  Sex: Female

DRUGS (19)
  1. FORTEO [Suspect]
     Dosage: 20 U G, DAILY (1/D)
     Dates: start: 20050101
  2. FORTEO [Concomitant]
  3. PREDNISONE TAB [Concomitant]
  4. NEXIUM [Concomitant]
  5. K-DUR 10 [Concomitant]
  6. LASIX [Concomitant]
  7. CELEXA [Concomitant]
  8. LORTAB [Concomitant]
  9. NORVASC [Concomitant]
  10. PREMARIN [Concomitant]
  11. RELAFEN [Concomitant]
  12. ZYRTEC [Concomitant]
  13. PLAQUENIL [Concomitant]
  14. SYNTHROID [Concomitant]
  15. ACTONEL [Concomitant]
  16. CAPTOPRIL [Concomitant]
  17. INSULIN [Concomitant]
  18. IMURAN [Concomitant]
  19. TEMAZEPAM [Concomitant]

REACTIONS (9)
  - ABSCESS LIMB [None]
  - FALL [None]
  - GAIT DISTURBANCE [None]
  - LUNG INFECTION [None]
  - PHARMACEUTICAL PRODUCT COMPLAINT [None]
  - POST PROCEDURAL COMPLICATION [None]
  - PUBIC RAMI FRACTURE [None]
  - SKIN ULCER [None]
  - STAPHYLOCOCCAL ABSCESS [None]
